FAERS Safety Report 23658628 (Version 2)
Quarter: 2024Q2

REPORT INFORMATION
  Report Type: Spontaneous
  Country: US (occurrence: US)
  Receive Date: 20240321
  Receipt Date: 20240418
  Transmission Date: 20240716
  Serious: Yes (Other)
  Sender: FDA-Public Use
  Company Number: US-BRISTOL-MYERS SQUIBB COMPANY-2024-042819

PATIENT
  Age: 66 Year
  Sex: Male

DRUGS (1)
  1. REVLIMID [Suspect]
     Active Substance: LENALIDOMIDE
     Indication: Follicular lymphoma stage I
     Dosage: TAKE 1 CAPSULE BY MOUTH EVERY DAY ON DAYS 1-21 OF A 28-DAY CYCLE
     Route: 048

REACTIONS (5)
  - Tooth infection [Recovering/Resolving]
  - Nasopharyngitis [Recovering/Resolving]
  - Post procedural complication [Recovering/Resolving]
  - Lower respiratory tract infection [Recovering/Resolving]
  - Rash [Recovered/Resolved]
